FAERS Safety Report 7571176-2 (Version None)
Quarter: 2011Q2

REPORT INFORMATION
  Report Type: 
  Country: None (occurrence: None)
  Receive Date: 20110624
  Receipt Date: 20110615
  Transmission Date: 20111010
  Serious: Yes (Other)
  Sender: FDA-Public Use
  Company Number: ES-JNJFOC-20110609405

PATIENT
  Age: 63 Year
  Sex: Female

DRUGS (5)
  1. FENOFIBRATE [Concomitant]
     Indication: DYSLIPIDAEMIA
     Route: 065
     Dates: start: 20081128
  2. TRAMADOL HCL [Suspect]
     Indication: BACK PAIN
     Route: 048
     Dates: start: 20110218, end: 20110220
  3. CRESTOR [Concomitant]
     Indication: DYSLIPIDAEMIA
     Route: 065
     Dates: start: 20100803
  4. ASPIRIN [Concomitant]
     Indication: CARDIOVASCULAR EVENT PROPHYLAXIS
     Route: 064
     Dates: start: 20081128
  5. METFORMIN SANDOZ [Concomitant]
     Indication: DIABETES MELLITUS
     Route: 065
     Dates: start: 20081126

REACTIONS (1)
  - APHASIA [None]
